FAERS Safety Report 4482457-3 (Version None)
Quarter: 2004Q4

REPORT INFORMATION
  Report Type: 
  Country: None (occurrence: None)
  Receive Date: 20041022
  Receipt Date: 20040930
  Transmission Date: 20050328
  Serious: Yes (Death)
  Sender: FDA-Public Use
  Company Number: 356725

PATIENT

DRUGS (13)
  1. COREG [Suspect]
     Dates: start: 20030101, end: 20040101
  2. NORVASC [Concomitant]
     Indication: HYPERTENSION
     Dosage: 20MG PER DAY
     Dates: start: 20030101, end: 20040101
  3. HYDRALAZINE HCL [Concomitant]
     Indication: HYPERTENSION
     Dosage: 400MG PER DAY
     Dates: start: 20030101, end: 20040101
  4. ALDOMET [Concomitant]
     Indication: HYPERTENSION
     Dosage: 1000MG PER DAY
     Dates: end: 20040101
  5. LASIX [Concomitant]
     Indication: CARDIAC FAILURE
     Dosage: 40MG PER DAY
  6. NPH INSULIN [Concomitant]
     Dates: start: 20030101, end: 20040101
  7. REGULAR ILETIN II [Concomitant]
     Dates: start: 20030101, end: 20040101
  8. PRENATAL VITAMINS [Concomitant]
     Dates: end: 20040101
  9. IRON [Concomitant]
     Dates: end: 20040101
  10. POTASSIUM [Concomitant]
     Dates: end: 20040101
  11. CYTOTEC [Concomitant]
     Dosage: 1200MCG PER DAY
     Dates: start: 20040126, end: 20040127
  12. UNKNOWN ANALGESIA [Concomitant]
     Dates: start: 20040101, end: 20040101
  13. MORPHINE [Concomitant]
     Dates: start: 20040101, end: 20040101

REACTIONS (11)
  - APGAR SCORE LOW [None]
  - APNOEA [None]
  - CARDIAC ARREST [None]
  - CARDIOVASCULAR DISORDER [None]
  - DRUG EXPOSURE DURING PREGNANCY [None]
  - FOETAL GROWTH RETARDATION [None]
  - FOETAL HEART RATE DECELERATION [None]
  - FOETAL HEART RATE DECREASED [None]
  - INTRA-UTERINE DEATH [None]
  - RESPIRATORY DEPTH DECREASED [None]
  - UMBILICAL CORD AROUND NECK [None]
